FAERS Safety Report 5665085-3 (Version None)
Quarter: 2008Q1

REPORT INFORMATION
  Report Type: 
  Country: None (occurrence: None)
  Receive Date: 20080314
  Receipt Date: 20080310
  Transmission Date: 20080703
  Serious: Yes (Life-Threatening)
  Sender: FDA-Public Use
  Company Number: SI-BOEHRINGER INGELHEIM GMBH, GERMANY-2008-AP-00057AP

PATIENT
  Sex: Male
  Weight: 85 kg

DRUGS (3)
  1. AGGRENOX [Suspect]
     Indication: ISCHAEMIC STROKE
     Dosage: DAILY DOSE 2 X 25/200
     Route: 048
     Dates: start: 20080114, end: 20080120
  2. ATORVASTATIN CALCIUM [Concomitant]
     Indication: HYPERCHOLESTEROLAEMIA
     Dates: start: 20080103
  3. HEPARIN [Concomitant]
     Indication: THROMBOSIS PROPHYLAXIS
     Route: 058
     Dates: start: 20080103, end: 20080119

REACTIONS (2)
  - GASTROINTESTINAL HAEMORRHAGE [None]
  - ULCER HAEMORRHAGE [None]
